FAERS Safety Report 8797306 (Version 1)
Quarter: 2012Q4

REPORT INFORMATION
  Report Type: 
  Country: US (occurrence: US)
  Receive Date: 20120920
  Receipt Date: 20120920
  Transmission Date: 20130627
  Serious: No
  Sender: FDA-Public Use
  Company Number: US-PFIZER INC-2012231179

PATIENT
  Age: 54 Year
  Sex: Male
  Weight: 85.26 kg

DRUGS (7)
  1. LYRICA [Suspect]
     Indication: NERVE BLOCK
     Dosage: 50 mg, 3x/day
     Dates: start: 20120911
  2. LYRICA [Suspect]
     Indication: NEURALGIA
  3. LYRICA [Suspect]
     Indication: CHEST PAIN
  4. GABAPENTIN [Suspect]
     Indication: BACK PAIN
     Dosage: 300 mg, 3x/day
     Dates: start: 201110
  5. GABAPENTIN [Suspect]
     Indication: CHEST PAIN
     Dosage: 600 mg, UNK
     Dates: end: 201112
  6. ACETAMINOPHEN [Concomitant]
     Dosage: 800 mg, 3x/day
     Dates: start: 20120911
  7. XANAX [Concomitant]
     Indication: ANXIETY
     Dosage: 2 mg, 2x/day

REACTIONS (2)
  - Drug ineffective [Unknown]
  - Joint swelling [Recovered/Resolved]
